FAERS Safety Report 10379615 (Version 1)
Quarter: 2014Q3

REPORT INFORMATION
  Report Type: Spontaneous
  Country: US (occurrence: US)
  Receive Date: 20140812
  Receipt Date: 20140812
  Transmission Date: 20150326
  Serious: Yes (Other)
  Sender: FDA-Public Use
  Company Number: US-ABBVIE-14P-163-1269033-00

PATIENT
  Age: 66 Year
  Sex: Male

DRUGS (1)
  1. ANDROGEL [Suspect]
     Active Substance: TESTOSTERONE
     Indication: BLOOD TESTOSTERONE DECREASED

REACTIONS (4)
  - Injury [Unknown]
  - Myocardial infarction [Unknown]
  - Loss of employment [Unknown]
  - Emotional distress [Unknown]

NARRATIVE: CASE EVENT DATE: 201208
